FAERS Safety Report 4499418-0 (Version None)
Quarter: 2004Q4

REPORT INFORMATION
  Report Type: 
  Country: None (occurrence: None)
  Receive Date: 20041111
  Receipt Date: 20041014
  Transmission Date: 20050328
  Serious: Yes (Death, Disabling)
  Sender: FDA-Public Use
  Company Number: JP-MERCK-0410USA02787

PATIENT
  Age: 51 Year
  Sex: Female
  Weight: 43 kg

DRUGS (11)
  1. PRIMAXIN [Suspect]
     Indication: PNEUMONIA BACTERIAL
     Route: 041
     Dates: start: 20020903, end: 20020911
  2. PENTAMIDINE ISETHIONATE [Suspect]
     Indication: PNEUMOCYSTIS CARINII PNEUMONIA
     Route: 041
     Dates: start: 20020903, end: 20020911
  3. PENTAMIDINE ISETHIONATE [Suspect]
     Route: 041
     Dates: start: 20020912, end: 20020916
  4. GAMMAGARD [Concomitant]
     Route: 042
     Dates: start: 20020903, end: 20020905
  5. METHYLPREDNISOLONE SODIUM SUCCINATE [Concomitant]
     Indication: INTERSTITIAL LUNG DISEASE
     Route: 051
     Dates: start: 20020906, end: 20020916
  6. FLUCONAZOLE [Concomitant]
     Indication: INFECTION PROPHYLAXIS
     Route: 042
     Dates: start: 20020905, end: 20020916
  7. MINOCYCLINE HYDROCHLORIDE [Suspect]
     Indication: PNEUMONIA PRIMARY ATYPICAL
     Route: 042
     Dates: start: 20020909, end: 20020916
  8. CIPROFLOXACIN [Concomitant]
     Indication: PNEUMONIA BACTERIAL
     Route: 042
     Dates: start: 20020912, end: 20020916
  9. [THERAPY UNSPECIFIED] [Concomitant]
     Indication: PLEURAL EFFUSION
     Route: 065
     Dates: start: 20020906
  10. [THERAPY UNSPECIFIED] [Concomitant]
     Indication: VENTRICULAR FAILURE
     Route: 065
     Dates: start: 20020906
  11. FILGRASTIM [Concomitant]
     Indication: NEUTROPHIL COUNT DECREASED
     Route: 058
     Dates: start: 20020907, end: 20020908

REACTIONS (14)
  - ASPERGILLOSIS [None]
  - ATELECTASIS [None]
  - BLOOD CHLORIDE DECREASED [None]
  - BLOOD SODIUM DECREASED [None]
  - BRONCHOPULMONARY ASPERGILLOSIS [None]
  - CARDIAC FAILURE [None]
  - CONDITION AGGRAVATED [None]
  - HAEMODIALYSIS [None]
  - INTERSTITIAL LUNG DISEASE [None]
  - PLEURAL EFFUSION [None]
  - PNEUMONIA PRIMARY ATYPICAL [None]
  - RENAL FAILURE [None]
  - RENAL FAILURE ACUTE [None]
  - TRACHEOBRONCHITIS [None]
